FAERS Safety Report 4717004-1 (Version None)
Quarter: 2005Q3

REPORT INFORMATION
  Report Type: 
  Country: None (occurrence: None)
  Receive Date: 20050719
  Receipt Date: 20050707
  Transmission Date: 20060218
  Serious: Yes (Other)
  Sender: FDA-Public Use
  Company Number: DE-JNJFOC-20050606243

PATIENT
  Sex: Female
  Weight: 75.5 kg

DRUGS (5)
  1. RISPERDAL CONSTA [Suspect]
     Route: 030
  2. RISPERDAL CONSTA [Suspect]
     Route: 030
  3. FLUANXOL DEPOT 2% [Suspect]
     Indication: DRUG USE FOR UNKNOWN INDICATION
     Dosage: DOSE STARTED 25 YEARS AGO
     Route: 030
  4. HALDOL [Concomitant]
     Dosage: STARTED 28 YEARS AGO
  5. SEROQUEL [Concomitant]
     Dosage: DOSE = UP TO 400 MG  GIVEN INTERMITTENTLY
     Route: 048

REACTIONS (4)
  - CEREBELLAR ATROPHY [None]
  - GAIT DISTURBANCE [None]
  - POVERTY OF SPEECH [None]
  - SCHIZOPHRENIA, PARANOID TYPE [None]
